FAERS Safety Report 7297384-6 (Version None)
Quarter: 2011Q1

REPORT INFORMATION
  Report Type: 
  Country: None (occurrence: None)
  Receive Date: 20110216
  Receipt Date: 20110214
  Transmission Date: 20110831
  Serious: Yes (Other)
  Sender: FDA-Public Use
  Company Number: US-AMGEN-QUU434463

PATIENT
  Age: 81 Year
  Sex: Female

DRUGS (3)
  1. RITUXIMAB [Concomitant]
     Dosage: UNK UNK, UNK
     Dates: start: 20091203
  2. NPLATE [Suspect]
     Indication: IDIOPATHIC THROMBOCYTOPENIC PURPURA
     Dosage: 2 A?G/KG, UNK
     Dates: start: 20091214, end: 20100611
  3. CORTICOSTEROID NOS [Concomitant]
     Dosage: UNK UNK, UNK
     Dates: start: 20090730

REACTIONS (1)
  - THROMBOCYTOPENIA [None]
